FAERS Safety Report 9313208 (Version 1)
Quarter: 2013Q2

REPORT INFORMATION
  Report Type: Spontaneous
  Country: US (occurrence: US)
  Receive Date: 20130528
  Receipt Date: 20130528
  Transmission Date: 20140414
  Serious: No
  Sender: FDA-Public Use
  Company Number: US-ABBOTT-13P-163-1061847-00

PATIENT
  Age: 79 Year
  Sex: Male
  Weight: 90.8 kg

DRUGS (10)
  1. ANDROGEL [Suspect]
     Indication: BLOOD TESTOSTERONE DECREASED
     Dosage: 1 PUMP DAILY
     Route: 061
     Dates: start: 2011
  2. PROMAX [Concomitant]
     Indication: PRODUCT USED FOR UNKNOWN INDICATION
  3. SIMVASTATIN [Concomitant]
     Indication: BLOOD CHOLESTEROL INCREASED
  4. PANTOPRAZOLE [Concomitant]
     Indication: GASTRIC DISORDER
  5. ENALAPRIL [Concomitant]
     Indication: HYPERTENSION
  6. LEVOTHYROXINE SODIUM [Concomitant]
     Indication: THYROID DISORDER
  7. METOPROLOL [Concomitant]
     Indication: PRODUCT USED FOR UNKNOWN INDICATION
  8. WARFARIN [Concomitant]
     Indication: PRODUCT USED FOR UNKNOWN INDICATION
  9. OXCARBAZEPINE [Concomitant]
     Indication: PAIN
  10. ISOSORBIDE [Concomitant]
     Indication: HYPERTENSION

REACTIONS (2)
  - Testicular atrophy [Not Recovered/Not Resolved]
  - Drug ineffective [Not Recovered/Not Resolved]
